FAERS Safety Report 19236554 (Version 2)
Quarter: 2021Q2

REPORT INFORMATION
  Report Type: Other
  Country: US (occurrence: US)
  Receive Date: 20210510
  Receipt Date: 20210524
  Transmission Date: 20210717
  Serious: Yes (Other)
  Sender: FDA-Public Use
  Company Number: US-ROCHE-2370433

PATIENT
  Age: 35 Year
  Sex: Female

DRUGS (9)
  1. OCREVUS [Suspect]
     Active Substance: OCRELIZUMAB
     Indication: RELAPSING-REMITTING MULTIPLE SCLEROSIS
  2. XYZAL [Concomitant]
     Active Substance: LEVOCETIRIZINE DIHYDROCHLORIDE
     Indication: SEASONAL ALLERGY
     Route: 048
  3. LASIX [Concomitant]
     Active Substance: FUROSEMIDE
     Indication: FLUID RETENTION
     Route: 048
  4. AJOVY [Concomitant]
     Active Substance: FREMANEZUMAB-VFRM
     Indication: HEADACHE
  5. OCREVUS [Suspect]
     Active Substance: OCRELIZUMAB
     Indication: RELAPSING MULTIPLE SCLEROSIS
     Dosage: EVERY 5 TO 6 MONTHS, ONGOING :YES; LAST DOSE: 03?NOV?2020
     Route: 042
     Dates: start: 20180507
  6. XANAX [Concomitant]
     Active Substance: ALPRAZOLAM
     Indication: ANXIETY
  7. BUSPAR [Concomitant]
     Active Substance: BUSPIRONE HYDROCHLORIDE
  8. PROVIGIL [Concomitant]
     Active Substance: MODAFINIL
     Indication: FATIGUE
  9. BOTOX [Concomitant]
     Active Substance: ONABOTULINUMTOXINA

REACTIONS (5)
  - Weight fluctuation [Unknown]
  - Multiple sclerosis relapse [Recovered/Resolved]
  - Asthma [Unknown]
  - Multiple sclerosis [Unknown]
  - COVID-19 [Recovering/Resolving]

NARRATIVE: CASE EVENT DATE: 201903
